FAERS Safety Report 18479995 (Version 1)
Quarter: 2020Q4

REPORT INFORMATION
  Report Type: Spontaneous
  Country: CH (occurrence: CH)
  Receive Date: 20201109
  Receipt Date: 20201109
  Transmission Date: 20210114
  Serious: Yes (Hospitalization)
  Sender: FDA-Public Use
  Company Number: CH-009507513-2011CHE000703

PATIENT
  Age: 80 Year
  Sex: Male

DRUGS (5)
  1. KEYTRUDA [Suspect]
     Active Substance: PEMBROLIZUMAB
     Dosage: 1 DOSE EVERY 3 WEEKS; CYCLICAL
     Route: 042
     Dates: start: 202006, end: 20200804
  2. TRIATEC (RAMIPRIL) [Concomitant]
     Active Substance: RAMIPRIL
     Dosage: THERAPY START DATE NOT KNOWN.
     Route: 048
  3. TENORMIN [Concomitant]
     Active Substance: ATENOLOL
     Dosage: THERAPY START DATE NOT KNOWN.
     Route: 048
  4. NOVO-NORM [Concomitant]
     Active Substance: REPAGLINIDE
     Dosage: THERAPY START DATE NOT KNOWN.
     Route: 048
  5. TEMESTA EXPIDET [Concomitant]
     Active Substance: LORAZEPAM
     Dosage: THERAPY START DATE NOT KNOWN.
     Route: 048

REACTIONS (2)
  - Colitis [Recovered/Resolved]
  - Hypokalaemia [Recovered/Resolved]

NARRATIVE: CASE EVENT DATE: 20200805
